FAERS Safety Report 7720680-2 (Version None)
Quarter: 2011Q3

REPORT INFORMATION
  Report Type: 
  Country: None (occurrence: None)
  Receive Date: 20110831
  Receipt Date: 20110824
  Transmission Date: 20111222
  Serious: Yes (Hospitalization)
  Sender: FDA-Public Use
  Company Number: DE-B.I. PHARMACEUTICALS,INC./RIDGEFIELD-2011-DE-04766DE

PATIENT
  Sex: Male
  Weight: 90 kg

DRUGS (3)
  1. SPIRIVA [Suspect]
     Indication: CHRONIC OBSTRUCTIVE PULMONARY DISEASE
     Dosage: 1 ANZ
     Dates: end: 20110723
  2. DIVERSE DRUGS [Concomitant]
     Indication: HYPERTENSION
  3. VIANI [Concomitant]
     Indication: CHRONIC OBSTRUCTIVE PULMONARY DISEASE

REACTIONS (3)
  - DIZZINESS [None]
  - LUMBAR VERTEBRAL FRACTURE [None]
  - FALL [None]
